FAERS Safety Report 8780499 (Version 1)
Quarter: 2012Q4

REPORT INFORMATION
  Report Type: Spontaneous
  Country: US (occurrence: None)
  Receive Date: 20120906
  Receipt Date: 20120906
  Transmission Date: 20130627
  Serious: No
  Sender: FDA-Public Use
  Company Number: None

PATIENT
  Sex: Female
  Weight: 88.72 kg

DRUGS (2)
  1. ONGLYZA [Suspect]
     Indication: TYPE 2 DIABETES MELLITUS
     Dates: start: 20120728, end: 20120802
  2. GLIPIZIDE [Suspect]
     Dates: start: 20120711, end: 20120718

REACTIONS (4)
  - Urticaria [None]
  - Dizziness [None]
  - Nausea [None]
  - Headache [None]
